FAERS Safety Report 18265063 (Version 2)
Quarter: 2020Q4

REPORT INFORMATION
  Report Type: Spontaneous
  Country: US (occurrence: US)
  Receive Date: 20200915
  Receipt Date: 20201001
  Transmission Date: 20210113
  Serious: Yes (Other)
  Sender: FDA-Public Use
  Company Number: US-AUROBINDO-AUR-APL-2020-047396

PATIENT
  Age: 20 Year
  Sex: Female

DRUGS (2)
  1. SULFAMETHOXAZOLE AND TRIMETHOPRIM 800/160 MG [Suspect]
     Active Substance: SULFAMETHOXAZOLE\TRIMETHOPRIM
     Indication: ESCHERICHIA INFECTION
     Dosage: UNK UNK, TWO TIMES A DAY
     Route: 065
  2. SULFAMETHOXAZOLE AND TRIMETHOPRIM 800/160 MG [Suspect]
     Active Substance: SULFAMETHOXAZOLE\TRIMETHOPRIM
     Indication: STAPHYLOCOCCAL INFECTION

REACTIONS (8)
  - Aneurysm [Recovered/Resolved]
  - Visual field defect [Recovered/Resolved]
  - Choroidal effusion [Recovered/Resolved]
  - Retinal haemorrhage [Recovered/Resolved]
  - Macular oedema [Recovered/Resolved]
  - Blindness [Recovered/Resolved]
  - Macular degeneration [Recovered/Resolved]
  - Pseudomyopia [Recovered/Resolved]
